FAERS Safety Report 16205036 (Version 1)
Quarter: 2019Q2

REPORT INFORMATION
  Report Type: Spontaneous
  Country: US (occurrence: US)
  Receive Date: 20190416
  Receipt Date: 20190416
  Transmission Date: 20190711
  Serious: No
  Sender: FDA-Public Use
  Company Number: US-CHILTERN-US-2019-000478

PATIENT
  Age: 64 Year
  Sex: Male

DRUGS (3)
  1. RHOPRESSA [Suspect]
     Active Substance: NETARSUDIL MESYLATE
     Indication: GLAUCOMA
     Dosage: 1 GTT, QD, RIGHT EYE AT NIGHT
     Route: 047
  2. XALATAN [Concomitant]
     Active Substance: LATANOPROST
     Indication: GLAUCOMA
     Dosage: UNK, QD AT NIGHT
     Route: 047
  3. COSOPT [Concomitant]
     Active Substance: DORZOLAMIDE HYDROCHLORIDE\TIMOLOL MALEATE
     Indication: GLAUCOMA
     Dosage: UNK, BID
     Route: 047

REACTIONS (1)
  - Drug ineffective [Unknown]

NARRATIVE: CASE EVENT DATE: 201901
